FAERS Safety Report 6881427-5 (Version None)
Quarter: 2010Q3

REPORT INFORMATION
  Report Type: 
  Country: None (occurrence: None)
  Receive Date: 20100728
  Receipt Date: 20100728
  Transmission Date: 20110219
  Serious: Yes (Other)
  Sender: FDA-Public Use
  Company Number: None

PATIENT
  Age: 56 Year
  Sex: Male
  Weight: 72.5755 kg

DRUGS (1)
  1. SIMVASTATIN [Suspect]
     Indication: BLOOD CHOLESTEROL INCREASED
     Dosage: 20 MG DAILY PO
     Route: 048
     Dates: start: 20071015, end: 20100511

REACTIONS (5)
  - ANXIETY [None]
  - INSOMNIA [None]
  - SLEEP DISORDER [None]
  - SUICIDAL IDEATION [None]
  - TINNITUS [None]
